FAERS Safety Report 24142575 (Version 1)
Quarter: 2024Q3

REPORT INFORMATION
  Report Type: Spontaneous
  Country: ZA (occurrence: None)
  Receive Date: 20240726
  Receipt Date: 20240726
  Transmission Date: 20241017
  Serious: Yes (Death)
  Sender: ASTRAZENECA
  Company Number: 2024A167781

PATIENT
  Age: 63 Year
  Sex: Male

DRUGS (10)
  1. BUDESONIDE\FORMOTEROL [Suspect]
     Active Substance: BUDESONIDE\FORMOTEROL
     Indication: Asthma
     Dosage: 160 UG/INHAL, UNKNOWN UNKNOWN
     Route: 055
  2. KETAGEX [Concomitant]
     Dosage: 0.25MG UNKNOWN
     Route: 047
  3. FLUTICASONE PROPIONATE [Concomitant]
     Active Substance: FLUTICASONE PROPIONATE
     Indication: Hypersensitivity
     Dosage: 50.0UG UNKNOWN
     Route: 045
  4. IBUGESIC FORTE [Concomitant]
     Dosage: UNKNOWN
     Route: 048
  5. VENTEZE CFC FREE [Concomitant]
     Indication: Bronchospasm
     Dosage: 100.0UG/INHAL UNKNOWN
     Route: 055
  6. ALLERGEX [Concomitant]
     Indication: Hypersensitivity
     Dosage: 4.0MG UNKNOWN
     Route: 048
  7. ESOMEPRAZOLE MAGNESIUM [Concomitant]
     Active Substance: ESOMEPRAZOLE MAGNESIUM
     Indication: Gastrooesophageal reflux disease
     Dosage: 40.0MG UNKNOWN
     Route: 048
  8. REUTERINA DAILY [Concomitant]
     Dosage: UNKNOWN
     Route: 048
  9. GLUCOVANCE [Concomitant]
     Active Substance: GLYBURIDE\METFORMIN HYDROCHLORIDE
     Indication: Diabetes mellitus
     Dosage: 500.0MG UNKNOWN
     Route: 048
  10. LIPOGEN [Concomitant]
     Indication: Blood cholesterol
     Dosage: 20.0MG UNKNOWN
     Route: 048

REACTIONS (1)
  - Death [Fatal]

NARRATIVE: CASE EVENT DATE: 20240707
